FAERS Safety Report 12386826 (Version 1)
Quarter: 2016Q2

REPORT INFORMATION
  Report Type: Spontaneous
  Country: US (occurrence: US)
  Receive Date: 20160519
  Receipt Date: 20160519
  Transmission Date: 20160815
  Serious: Yes (Other)
  Sender: FDA-Public Use
  Company Number: US-ENDO PHARMACEUTICALS INC.-2016-003210

PATIENT
  Age: 10 Year
  Sex: Female

DRUGS (1)
  1. SUPPRELIN LA [Suspect]
     Active Substance: HISTRELIN ACETATE
     Indication: PRODUCT USED FOR UNKNOWN INDICATION
     Route: 058
     Dates: start: 20160427, end: 20160429

REACTIONS (3)
  - Peripheral swelling [Recovering/Resolving]
  - Medical device removal [Recovered/Resolved]
  - Implant site erythema [Recovering/Resolving]

NARRATIVE: CASE EVENT DATE: 20160429
